FAERS Safety Report 22647867 (Version 1)
Quarter: 2023Q2

REPORT INFORMATION
  Report Type: Spontaneous
  Country: CA (occurrence: CA)
  Receive Date: 20230628
  Receipt Date: 20230628
  Transmission Date: 20230722
  Serious: Yes (Other)
  Sender: FDA-Public Use
  Company Number: CA-CELLTRION INC.-2023CA012138

PATIENT

DRUGS (5)
  1. INFLECTRA [Suspect]
     Active Substance: INFLIXIMAB-DYYB
     Indication: Crohn^s disease
     Dosage: 400 MG, INDUCTION W0,2,6 THEN EVERY 8 WEEKS
     Route: 042
     Dates: start: 20230419
  2. INFLECTRA [Suspect]
     Active Substance: INFLIXIMAB-DYYB
     Dosage: 400 MG, INDUCTION W0,2,6 THEN EVERY 8 WEEKS
     Route: 042
  3. INFLECTRA [Suspect]
     Active Substance: INFLIXIMAB-DYYB
     Dosage: 400 MG, INDUCTION W0,2,6 THEN EVERY 8 WEEKS
     Route: 042
     Dates: start: 20230504
  4. PANTOPRAZOLE [Concomitant]
     Active Substance: PANTOPRAZOLE
     Dosage: UNK
  5. PREDNISONE [Concomitant]
     Active Substance: PREDNISONE
     Dosage: UNK

REACTIONS (5)
  - Anal abscess [Not Recovered/Not Resolved]
  - Rash pruritic [Recovered/Resolved with Sequelae]
  - Somnolence [Unknown]
  - Feeling abnormal [Unknown]
  - Tension [Unknown]

NARRATIVE: CASE EVENT DATE: 20230101
